FAERS Safety Report 12849456 (Version 4)
Quarter: 2016Q4

REPORT INFORMATION
  Report Type: Report from Study
  Country: None (occurrence: DE)
  Receive Date: 20161014
  Receipt Date: 20161202
  Transmission Date: 20170207
  Serious: Yes (Hospitalization, Other)
  Sender: FDA-Public Use
  Company Number: DE-ABBVIE-16K-062-1749989-00

PATIENT
  Age: 52 Year
  Sex: Male

DRUGS (12)
  1. HUMIRA [Suspect]
     Active Substance: ADALIMUMAB
     Indication: PSORIASIS
     Route: 058
     Dates: start: 201501, end: 201604
  2. OPIPRAMOL [Concomitant]
     Active Substance: OPIPRAMOL
     Indication: PRODUCT USED FOR UNKNOWN INDICATION
     Dates: end: 201606
  3. BUDES [Concomitant]
     Active Substance: BUDESONIDE
     Indication: PRODUCT USED FOR UNKNOWN INDICATION
  4. HUMIRA [Suspect]
     Active Substance: ADALIMUMAB
     Indication: PSORIASIS
  5. HUMIRA [Suspect]
     Active Substance: ADALIMUMAB
     Indication: PSORIATIC ARTHROPATHY
     Route: 058
     Dates: start: 2016
  6. ATORVASTATIN [Concomitant]
     Active Substance: ATORVASTATIN
  7. SAB-SIMPLEX [Concomitant]
     Indication: PRODUCT USED FOR UNKNOWN INDICATION
     Dates: end: 201606
  8. MAGNESIUM [Concomitant]
     Active Substance: MAGNESIUM
     Indication: PRODUCT USED FOR UNKNOWN INDICATION
  9. DICLOFENAC [Concomitant]
     Active Substance: DICLOFENAC
     Indication: PRODUCT USED FOR UNKNOWN INDICATION
  10. FLUTIFORM [Concomitant]
     Active Substance: FLUTICASONE PROPIONATE\FORMOTEROL FUMARATE
     Indication: PRODUCT USED FOR UNKNOWN INDICATION
  11. ASPIRIN. [Concomitant]
     Active Substance: ASPIRIN
     Indication: PRODUCT USED FOR UNKNOWN INDICATION
  12. ATORVASTATIN [Concomitant]
     Active Substance: ATORVASTATIN
     Indication: PRODUCT USED FOR UNKNOWN INDICATION
     Dates: end: 201606

REACTIONS (23)
  - Nuclear magnetic resonance imaging abnormal [Not Recovered/Not Resolved]
  - CSF protein increased [Unknown]
  - Depression [Unknown]
  - Blood creatine phosphokinase increased [Unknown]
  - Creatinine renal clearance increased [Unknown]
  - Alanine aminotransferase increased [Unknown]
  - Leukoencephalopathy [Not Recovered/Not Resolved]
  - White matter lesion [Unknown]
  - Blood cholesterol increased [Unknown]
  - Visual evoked potentials abnormal [Unknown]
  - Ultrasound skull abnormal [Unknown]
  - Bacterial test positive [Unknown]
  - Double stranded DNA antibody positive [Unknown]
  - Fatigue [Unknown]
  - Cognitive disorder [Unknown]
  - Eosinophil count increased [Unknown]
  - Chest X-ray abnormal [Unknown]
  - Nuclear magnetic resonance imaging spinal abnormal [Unknown]
  - Intervertebral disc protrusion [Unknown]
  - Central nervous system inflammation [Unknown]
  - Peripheral sensory neuropathy [Unknown]
  - Lipid metabolism disorder [Unknown]
  - Spinal osteoarthritis [Unknown]

NARRATIVE: CASE EVENT DATE: 2015
